FAERS Safety Report 17139408 (Version 1)
Quarter: 2019Q4

REPORT INFORMATION
  Report Type: Spontaneous
  Country: US (occurrence: US)
  Receive Date: 20191210
  Receipt Date: 20191210
  Transmission Date: 20200122
  Serious: No
  Sender: FDA-Public Use
  Company Number: None

PATIENT
  Age: 56 Year
  Sex: Male

DRUGS (1)
  1. AXICABTAGENE CILOLEUCEL [Suspect]
     Active Substance: AXICABTAGENE CILOLEUCEL

REACTIONS (12)
  - Dyspnoea [None]
  - Tachypnoea [None]
  - Chest discomfort [None]
  - Weight decreased [None]
  - Fatigue [None]
  - Back pain [None]
  - Tachycardia [None]
  - Neurotoxicity [None]
  - Pleural effusion [None]
  - Hyperhidrosis [None]
  - Orthostatic hypotension [None]
  - Pneumonia streptococcal [None]

NARRATIVE: CASE EVENT DATE: 20191027
